FAERS Safety Report 5196808-8 (Version None)
Quarter: 2006Q4

REPORT INFORMATION
  Report Type: 
  Country: None (occurrence: None)
  Receive Date: 20061227
  Receipt Date: 20061215
  Transmission Date: 20070319
  Serious: Yes (Other)
  Sender: FDA-Public Use
  Company Number: 2006153903

PATIENT
  Age: 29 Year
  Sex: Female
  Weight: 158 kg

DRUGS (1)
  1. DETROL LA [Suspect]
     Indication: HYPERTONIC BLADDER
     Dosage: 4 MG (4 MG, 1 IN 1 D)
     Dates: start: 20061212

REACTIONS (4)
  - EYELID OEDEMA [None]
  - SWOLLEN TONGUE [None]
  - THIRST [None]
  - TONGUE DISORDER [None]
